FAERS Safety Report 9133685 (Version 1)
Quarter: 2013Q1

REPORT INFORMATION
  Report Type: Spontaneous
  Country: US (occurrence: US)
  Receive Date: 20130302
  Receipt Date: 20130302
  Transmission Date: 20140127
  Serious: No
  Sender: FDA-Public Use
  Company Number: US-ENDO PHARMACEUTICALS INC.-ZYDN20110001

PATIENT
  Age: 64 None
  Sex: Male
  Weight: 83.99 kg

DRUGS (7)
  1. ZYDONE [Suspect]
     Indication: FIBROMYALGIA
     Dosage: 60/2400 MG
     Route: 048
     Dates: start: 2000
  2. XANAX [Concomitant]
     Indication: SLEEP DISORDER
  3. BENADRYL [Concomitant]
     Indication: CYSTITIS INTERSTITIAL
  4. RESTORIL [Concomitant]
     Indication: SLEEP DISORDER
     Dosage: 5 MG
  5. MULTIVITAMIN [Concomitant]
  6. STOOL SOFTENER [Concomitant]
     Indication: PROPHYLAXIS
  7. MSM [Concomitant]

REACTIONS (2)
  - Visual impairment [Not Recovered/Not Resolved]
  - Eye disorder [Not Recovered/Not Resolved]
